FAERS Safety Report 25369208 (Version 1)
Quarter: 2025Q2

REPORT INFORMATION
  Report Type: Spontaneous
  Country: US (occurrence: US)
  Receive Date: 20250528
  Receipt Date: 20250528
  Transmission Date: 20250717
  Serious: No
  Sender: MYLAN
  Company Number: US-MYLANLABS-2025M1043197

PATIENT
  Age: 77 Year
  Sex: Female
  Weight: 64.41 kg

DRUGS (1)
  1. TYRVAYA [Suspect]
     Active Substance: VARENICLINE TARTRATE
     Indication: Dry eye
     Dosage: UNK, BID (ONCE IN A MORNING, AND ONCE AT NIGHT, 12 HOURS APART)
     Dates: start: 202505

REACTIONS (5)
  - Rhinorrhoea [Unknown]
  - Eye irritation [Recovering/Resolving]
  - Sneezing [Unknown]
  - Accidental exposure to product [Unknown]
  - Product delivery mechanism issue [Unknown]

NARRATIVE: CASE EVENT DATE: 20250501
